FAERS Safety Report 6017644-6 (Version None)
Quarter: 2008Q4

REPORT INFORMATION
  Report Type: 
  Country: None (occurrence: None)
  Receive Date: 20081223
  Receipt Date: 20081210
  Transmission Date: 20090506
  Serious: Yes (Death)
  Sender: FDA-Public Use
  Company Number: JP-PURDUE-MAG_2008_0000751

PATIENT
  Age: 56 Year
  Sex: Male

DRUGS (4)
  1. OXYCODONE HCL PR TABLET 40 MG [Suspect]
     Indication: POST HERPETIC NEURALGIA
     Dosage: 40 MG, DAILY
     Route: 065
  2. OXYCODONE HCL PR TABLET 40 MG [Suspect]
     Dosage: 10 MG, DAILY
  3. AMITRIPTYLINE HYDROCHLORIDE [Concomitant]
     Indication: PAIN
     Dosage: 25 MG, DAILY
     Route: 065
  4. GABAPENTIN [Concomitant]
     Indication: PAIN
     Dosage: 400 MG, DAILY
     Route: 065

REACTIONS (2)
  - BURKITT'S LYMPHOMA [None]
  - SOMNOLENCE [None]
